FAERS Safety Report 8036630-8 (Version None)
Quarter: 2012Q1

REPORT INFORMATION
  Report Type: 
  Country: None (occurrence: None)
  Receive Date: 20120111
  Receipt Date: 20120104
  Transmission Date: 20120608
  Serious: Yes (Other)
  Sender: FDA-Public Use
  Company Number: US-JNJFOC-20111008097

PATIENT
  Sex: Male
  Weight: 106.6 kg

DRUGS (13)
  1. VESICARE [Concomitant]
     Indication: CYSTITIS
     Route: 065
  2. ARICEPT [Concomitant]
     Route: 065
  3. FLOMAX [Concomitant]
     Indication: CYSTITIS
     Route: 065
  4. PROVIGIL [Concomitant]
     Route: 065
  5. BETA BLOCKERS, NOS [Concomitant]
     Route: 065
  6. CHLOROTHIAZIDE [Concomitant]
     Route: 065
  7. ZYTIGA [Suspect]
     Indication: PROSTATE CANCER
     Route: 048
     Dates: start: 20111013, end: 20111016
  8. NEURONTIN [Concomitant]
     Route: 065
  9. CELEBREX [Concomitant]
     Route: 065
  10. AVODART [Concomitant]
     Route: 065
  11. PREDNISONE TAB [Concomitant]
     Route: 065
     Dates: start: 20111017
  12. LASIX [Concomitant]
     Route: 065
  13. HYDROCHLOROTHIAZIDE [Concomitant]
     Route: 065

REACTIONS (2)
  - CYSTITIS [None]
  - HYPOTENSION [None]
